FAERS Safety Report 5194311-2 (Version None)
Quarter: 2006Q4

REPORT INFORMATION
  Report Type: 
  Country: None (occurrence: None)
  Receive Date: 20061228
  Receipt Date: 20061016
  Transmission Date: 20070319
  Serious: Yes (Death)
  Sender: FDA-Public Use
  Company Number: BG-SHR-BG-2006-032016

PATIENT
  Age: 78 Year
  Sex: Female
  Weight: 64 kg

DRUGS (1)
  1. FLUDARABINE PHOSPHATE (SH L 573) [Suspect]
     Route: 042
     Dates: start: 20060128, end: 20060707

REACTIONS (22)
  - ACUTE MYELOID LEUKAEMIA [None]
  - BILIRUBIN CONJUGATED INCREASED [None]
  - BLOOD BILIRUBIN INCREASED [None]
  - BLOOD CREATININE INCREASED [None]
  - BLOOD GLUCOSE DECREASED [None]
  - BLOOD GLUCOSE INCREASED [None]
  - BLOOD LACTATE DEHYDROGENASE INCREASED [None]
  - BONE MARROW FAILURE [None]
  - CARDIOVASCULAR INSUFFICIENCY [None]
  - CREPITATIONS [None]
  - FATIGUE [None]
  - HAEMOGLOBIN DECREASED [None]
  - HYPERHIDROSIS [None]
  - HYPOKALAEMIA [None]
  - JAUNDICE [None]
  - LEUKOCYTOSIS [None]
  - MARROW HYPERPLASIA [None]
  - NEUTROPHIL COUNT DECREASED [None]
  - PAIN IN EXTREMITY [None]
  - RED BLOOD CELL COUNT INCREASED [None]
  - RESPIRATORY FAILURE [None]
  - WHITE BLOOD CELL COUNT INCREASED [None]
